FAERS Safety Report 9571174 (Version 2)
Quarter: 2013Q4

REPORT INFORMATION
  Report Type: Report from Study
  Country: BR (occurrence: BR)
  Receive Date: 20131001
  Receipt Date: 20131001
  Transmission Date: 20140711
  Serious: Yes (Other)
  Sender: FDA-Public Use
  Company Number: PHHY2013BR089266

PATIENT
  Sex: Female

DRUGS (6)
  1. GALVUS MET [Suspect]
     Indication: DIABETES MELLITUS
     Dosage: 1 DF(500MG METF/50 MG VILD), PER DAY
     Route: 048
  2. DIOVAN [Suspect]
     Indication: HYPERTENSION
     Dosage: 80 MG, QD (IN MORNING)
     Route: 048
  3. TRYPTANOL [Concomitant]
     Indication: DEPRESSION
     Dosage: 3 DF (2 MG), DAILY
     Route: 048
     Dates: start: 1971
  4. SIMVASTATIN [Concomitant]
     Indication: BLOOD CHOLESTEROL ABNORMAL
     Dosage: 1 DF, DAILY
     Route: 048
  5. GLIFAGE [Concomitant]
     Indication: BLOOD GLUCOSE ABNORMAL
     Dosage: 1 DF (500), DAILY
     Route: 048
  6. FOSAMAX [Concomitant]
     Indication: OSTEOARTHRITIS
     Dosage: 1 DF, QW
     Route: 048

REACTIONS (3)
  - Mobility decreased [Unknown]
  - Poor quality sleep [Recovering/Resolving]
  - Feeling abnormal [Recovering/Resolving]
